FAERS Safety Report 12810746 (Version 1)
Quarter: 2016Q4

REPORT INFORMATION
  Report Type: Spontaneous
  Country: US (occurrence: US)
  Receive Date: 20161005
  Receipt Date: 20161005
  Transmission Date: 20170207
  Serious: Yes (Hospitalization)
  Sender: FDA-Public Use
  Company Number: None

PATIENT
  Age: 17 Year
  Sex: Female
  Weight: 41.7 kg

DRUGS (6)
  1. ONCASPAR [Suspect]
     Active Substance: PEGASPARGASE
     Dates: end: 20160812
  2. DAUNORUBICIN [Suspect]
     Active Substance: DAUNORUBICIN
     Dates: end: 20160825
  3. CYTARABINE. [Suspect]
     Active Substance: CYTARABINE
     Dates: end: 20160809
  4. PREDNISONE. [Suspect]
     Active Substance: PREDNISONE
     Dates: end: 20160825
  5. METHOTREXATE. [Suspect]
     Active Substance: METHOTREXATE
     Dates: end: 20160824
  6. VINCRISTINE SULFATE. [Suspect]
     Active Substance: VINCRISTINE SULFATE
     Dates: end: 20160824

REACTIONS (4)
  - Fungal test positive [None]
  - Pleural effusion [None]
  - Enterococcus test positive [None]
  - Pharyngeal abscess [None]

NARRATIVE: CASE EVENT DATE: 20160908
